FAERS Safety Report 24204449 (Version 1)
Quarter: 2024Q3

REPORT INFORMATION
  Report Type: Spontaneous
  Country: CN (occurrence: CN)
  Receive Date: 20240813
  Receipt Date: 20240813
  Transmission Date: 20241016
  Serious: Yes (Other)
  Sender: ACCORD
  Company Number: None

PATIENT
  Age: 64 Year
  Sex: Female

DRUGS (4)
  1. TRASTUZUMAB [Suspect]
     Active Substance: TRASTUZUMAB
     Indication: Invasive ductal breast carcinoma
     Dosage: 282 MILLIGRAM, QD
     Dates: start: 20240712, end: 20240712
  2. PACLITAXEL [Suspect]
     Active Substance: PACLITAXEL
     Indication: Invasive ductal breast carcinoma
     Dosage: 116 MILLIGRAM, WEEKLY
     Dates: start: 20240712, end: 20240726
  3. CARBOPLATIN [Suspect]
     Active Substance: CARBOPLATIN
     Indication: Invasive ductal breast carcinoma
     Dosage: 370 MILLIGRAM, QD
     Dates: start: 20240712, end: 20240712
  4. PYROTINIB [Suspect]
     Active Substance: PYROTINIB
     Indication: Invasive ductal breast carcinoma
     Dosage: 320 MILLIGRAM, QD
     Route: 048
     Dates: start: 20240712, end: 20240801

REACTIONS (2)
  - Granulocyte count decreased [Recovering/Resolving]
  - White blood cell count decreased [Recovering/Resolving]

NARRATIVE: CASE EVENT DATE: 20240725
